FAERS Safety Report 9330233 (Version 1)
Quarter: 2013Q2

REPORT INFORMATION
  Report Type: Spontaneous
  Country: US (occurrence: US)
  Receive Date: 20130604
  Receipt Date: 20130604
  Transmission Date: 20140414
  Serious: Yes (Hospitalization, Other)
  Sender: FDA-Public Use
  Company Number: US-PFIZER INC-2013167537

PATIENT
  Age: 79 Year
  Sex: Female

DRUGS (1)
  1. REVATIO [Suspect]
     Indication: PULMONARY ARTERIAL HYPERTENSION
     Dosage: 20 MG, 3X/DAY
     Dates: start: 201005

REACTIONS (6)
  - Dehydration [Unknown]
  - Eye swelling [Unknown]
  - Swelling face [Unknown]
  - Swollen tongue [Unknown]
  - Dyspnoea [Unknown]
  - Fatigue [Unknown]
